FAERS Safety Report 7141532-5 (Version None)
Quarter: 2010Q4

REPORT INFORMATION
  Report Type: 
  Country: None (occurrence: None)
  Receive Date: 20101126
  Receipt Date: 20101115
  Transmission Date: 20110411
  Serious: Yes (Hospitalization)
  Sender: FDA-Public Use
  Company Number: AXC-2010-000299

PATIENT
  Age: 24 Year
  Sex: Female

DRUGS (1)
  1. MESALAMINE [Suspect]
     Indication: COLITIS ULCERATIVE
     Dosage: 800 MG, BID,

REACTIONS (4)
  - CHEST PAIN [None]
  - PLEURAL EFFUSION [None]
  - WEGENER'S GRANULOMATOSIS [None]
  - WHITE BLOOD CELL COUNT INCREASED [None]
